FAERS Safety Report 23690721 (Version 1)
Quarter: 2024Q2

REPORT INFORMATION
  Report Type: Report from Study
  Country: CO (occurrence: CO)
  Receive Date: 20240401
  Receipt Date: 20240401
  Transmission Date: 20240717
  Serious: Yes (Death)
  Sender: FDA-Public Use
  Company Number: CO-JNJFOC-20240382476

PATIENT
  Age: 86 Year
  Sex: Female
  Weight: 84 kg

DRUGS (1)
  1. IMBRUVICA [Suspect]
     Active Substance: IBRUTINIB
     Indication: Chronic lymphocytic leukaemia
     Route: 048
     Dates: start: 20201117, end: 20240229

REACTIONS (1)
  - Death [Fatal]

NARRATIVE: CASE EVENT DATE: 20240229
